FAERS Safety Report 8992359 (Version 1)
Quarter: 2012Q4

REPORT INFORMATION
  Report Type: 
  Country: JP (occurrence: JP)
  Receive Date: 20121231
  Receipt Date: 20121231
  Transmission Date: 20130627
  Serious: Yes (Hospitalization)
  Sender: FDA-Public Use
  Company Number: JP-JNJFOC-20121212654

PATIENT
  Age: 84 Year
  Sex: Female

DRUGS (2)
  1. XARELTO [Suspect]
     Indication: ATRIAL FIBRILLATION
     Route: 048
     Dates: start: 20120425
  2. XARELTO [Suspect]
     Indication: CEREBROVASCULAR ACCIDENT PROPHYLAXIS
     Route: 048
     Dates: start: 20120425

REACTIONS (2)
  - Cardiac failure [Unknown]
  - Occult blood [Not Recovered/Not Resolved]
